FAERS Safety Report 5991069-1 (Version None)
Quarter: 2008Q4

REPORT INFORMATION
  Report Type: 
  Country: None (occurrence: None)
  Receive Date: 20081202
  Receipt Date: 20080206
  Transmission Date: 20090506
  Serious: Yes (Disabling)
  Sender: FDA-Public Use
  Company Number: WAES 0705USA00148

PATIENT
  Age: 76 Year
  Sex: Female
  Weight: 63.5036 kg

DRUGS (5)
  1. FOSAMAX [Suspect]
     Indication: ARTHRITIS
     Dosage: 70 MG/WKY/PO
     Route: 048
     Dates: start: 20010101, end: 20070412
  2. NORVASC [Concomitant]
  3. TOPROL-XL [Concomitant]
  4. ZOCOR [Concomitant]
  5. ZOLOFT [Concomitant]

REACTIONS (4)
  - FACE INJURY [None]
  - FALL [None]
  - OFF LABEL USE [None]
  - OSTEONECROSIS [None]
